FAERS Safety Report 9414179 (Version 2)
Quarter: 2013Q3

REPORT INFORMATION
  Report Type: Spontaneous
  Country: US (occurrence: US)
  Receive Date: 20130723
  Receipt Date: 20130809
  Transmission Date: 20140515
  Serious: No
  Sender: FDA-Public Use
  Company Number: US-009507513-1307USA012801

PATIENT
  Sex: Female

DRUGS (1)
  1. COPPERTONE SPORT STICK SPF 30 [Suspect]
     Indication: PRODUCT USED FOR UNKNOWN INDICATION
     Dosage: UNK, UNKNOWN
     Route: 061

REACTIONS (3)
  - Chemical injury [Not Recovered/Not Resolved]
  - Crying [Unknown]
  - Screaming [Unknown]
